FAERS Safety Report 17725537 (Version 3)
Quarter: 2020Q2

REPORT INFORMATION
  Report Type: Spontaneous
  Country: AR (occurrence: AR)
  Receive Date: 20200429
  Receipt Date: 20200507
  Transmission Date: 20200714
  Serious: Yes (Hospitalization)
  Sender: FDA-Public Use
  Company Number: AR-PFIZER INC-2020171850

PATIENT
  Age: 72 Year
  Sex: Female
  Weight: 90 kg

DRUGS (1)
  1. XELJANZ XR [Suspect]
     Active Substance: TOFACITINIB CITRATE
     Indication: RHEUMATOID ARTHRITIS
     Dosage: 11 MG, 1X/DAY
     Dates: start: 20190615, end: 20200305

REACTIONS (5)
  - Disease progression [Not Recovered/Not Resolved]
  - Chronic obstructive pulmonary disease [Unknown]
  - Pneumonia [Recovering/Resolving]
  - Malaise [Recovering/Resolving]
  - Infection [Not Recovered/Not Resolved]

NARRATIVE: CASE EVENT DATE: 20200305
